FAERS Safety Report 5719421-X (Version None)
Quarter: 2008Q2

REPORT INFORMATION
  Report Type: 
  Country: None (occurrence: None)
  Receive Date: 20080428
  Receipt Date: 20080421
  Transmission Date: 20081010
  Serious: Yes (Death, Other)
  Sender: FDA-Public Use
  Company Number: PHHO2007DE05370

PATIENT
  Age: 78 Year
  Sex: Female

DRUGS (9)
  1. TASIGNA [Suspect]
     Indication: CHRONIC MYELOID LEUKAEMIA
     Dosage: 800 MG, QD
     Route: 048
     Dates: start: 20061106
  2. RAMIPRIL [Concomitant]
     Indication: HYPERTENSION
     Dosage: 5 MG, UNK
  3. DIHYDROCODEINE [Concomitant]
     Dosage: 40 MG, UNK
  4. PANTOPRAZOLE SODIUM [Concomitant]
     Dosage: 40 MG, UNK
  5. L-THYROXIN [Concomitant]
     Dosage: 100 UG, UNK
  6. LEVODOPA W/BENSERAZIDE/ [Concomitant]
     Dosage: 145 UG, UNK
  7. MOXIFLOXACIN HCL [Suspect]
     Indication: RESPIRATORY TRACT INFECTION
     Dosage: 400 MG, UNK
     Dates: start: 20070316, end: 20070324
  8. PANTOZOL [Concomitant]
  9. MADOPAR [Concomitant]

REACTIONS (6)
  - BRADYCARDIA [None]
  - DECREASED APPETITE [None]
  - ELECTROCARDIOGRAM T WAVE INVERSION [None]
  - SUDDEN DEATH [None]
  - UPPER RESPIRATORY TRACT INFECTION [None]
  - VERTIGO [None]
